FAERS Safety Report 24219114 (Version 4)
Quarter: 2025Q1

REPORT INFORMATION
  Report Type: Spontaneous
  Country: US (occurrence: US)
  Receive Date: 20240816
  Receipt Date: 20250130
  Transmission Date: 20250408
  Serious: No
  Sender: NOVARTIS
  Company Number: US-002147023-NVSC2024US166351

PATIENT
  Sex: Male
  Weight: 73 kg

DRUGS (2)
  1. SCEMBLIX [Suspect]
     Active Substance: ASCIMINIB HYDROCHLORIDE
     Indication: Chronic myeloid leukaemia
     Dosage: 80 MG, QD
     Route: 048
     Dates: start: 20240510
  2. SCEMBLIX [Suspect]
     Active Substance: ASCIMINIB HYDROCHLORIDE
     Indication: Philadelphia chromosome positive

REACTIONS (5)
  - Brain fog [Unknown]
  - Antisocial behaviour [Unknown]
  - Nausea [Recovering/Resolving]
  - Dry mouth [Recovering/Resolving]
  - Dysgeusia [Recovering/Resolving]
